FAERS Safety Report 5423552-1 (Version None)
Quarter: 2007Q3

REPORT INFORMATION
  Report Type: 
  Country: None (occurrence: None)
  Receive Date: 20070823
  Receipt Date: 20070522
  Transmission Date: 20080115
  Serious: No
  Sender: FDA-Public Use
  Company Number: US-ASTRAZENECA-2007UW12714

PATIENT
  Age: 80 Year
  Sex: Female

DRUGS (7)
  1. IRESSA [Suspect]
     Indication: LUNG NEOPLASM MALIGNANT
     Route: 048
  2. MULTI-VITAMIN [Concomitant]
  3. CALCIUM [Concomitant]
  4. ACTONEL [Concomitant]
  5. DETR0L [Concomitant]
  6. ARICEPT [Concomitant]
  7. DILANTIN [Concomitant]

REACTIONS (3)
  - ALOPECIA [None]
  - PRURITUS [None]
  - RASH [None]
